FAERS Safety Report 8738413 (Version 4)
Quarter: 2017Q1

REPORT INFORMATION
  Report Type: Spontaneous
  Country: US (occurrence: US)
  Receive Date: 20120823
  Receipt Date: 20170224
  Transmission Date: 20170429
  Serious: Yes (Hospitalization, Disabling, Other)
  Sender: FDA-Public Use
  Company Number: US-009507513-1208USA005575

PATIENT
  Sex: Female

DRUGS (7)
  1. FOSAMAX [Suspect]
     Active Substance: ALENDRONATE SODIUM
     Dosage: 70 MG, QD
     Route: 048
     Dates: start: 20090311
  2. FOLIC ACID. [Concomitant]
     Active Substance: FOLIC ACID
     Dosage: 1 MG, BID
     Dates: start: 2000
  3. CYANOCOBALAMIN. [Concomitant]
     Active Substance: CYANOCOBALAMIN
     Dosage: 500 MG, BID
     Dates: start: 2000
  4. SINGULAIR [Concomitant]
     Active Substance: MONTELUKAST SODIUM
     Indication: HYPERSENSITIVITY
  5. FOSAMAX [Suspect]
     Active Substance: ALENDRONATE SODIUM
     Indication: OSTEOPENIA
     Dosage: 70 MG, UNKNOWN
     Route: 048
     Dates: start: 20010125, end: 20080301
  6. GLUCOSAMINE [Concomitant]
     Active Substance: GLUCOSAMINE
     Dosage: 500 MG, TID
     Dates: start: 2000
  7. DACOGEN [Concomitant]
     Active Substance: DECITABINE
     Indication: SICKLE CELL ANAEMIA

REACTIONS (20)
  - Depression [Unknown]
  - Medical device removal [Unknown]
  - Radius fracture [Unknown]
  - Anxiety [Unknown]
  - Low turnover osteopathy [Not Recovered/Not Resolved]
  - Femur fracture [Not Recovered/Not Resolved]
  - Device failure [Unknown]
  - Cardiac failure congestive [Unknown]
  - Osteoporosis [Not Recovered/Not Resolved]
  - Incorrect dose administered [Unknown]
  - Atrial fibrillation [Unknown]
  - Lumbar radiculopathy [Unknown]
  - Biopsy breast [Unknown]
  - Hypertension [Unknown]
  - Oral surgery [Unknown]
  - Spinal osteoarthritis [Not Recovered/Not Resolved]
  - Hepatitis C [Unknown]
  - Biopsy breast [Unknown]
  - Cholecystectomy [Unknown]
  - Anaemia postoperative [Unknown]

NARRATIVE: CASE EVENT DATE: 2004
